FAERS Safety Report 9806981 (Version 1)
Quarter: 2014Q1

REPORT INFORMATION
  Report Type: Spontaneous
  Country: CA (occurrence: CA)
  Receive Date: 20140109
  Receipt Date: 20140109
  Transmission Date: 20141002
  Serious: Yes (Life-Threatening)
  Sender: FDA-Public Use
  Company Number: CA-ASTRAZENECA-2014SE01557

PATIENT
  Age: 89 Year
  Sex: Female

DRUGS (4)
  1. SEROQUEL [Suspect]
     Route: 048
  2. DIGOXIN [Concomitant]
  3. GABAPENTIN [Concomitant]
  4. ANTIINFECTIVES [Concomitant]
     Dosage: SYSTEMIC USE

REACTIONS (6)
  - Dysuria [Recovered/Resolved]
  - Eye disorder [Recovered/Resolved]
  - Miosis [Recovered/Resolved]
  - Mobility decreased [Recovered/Resolved]
  - Speech disorder [Recovered/Resolved]
  - Dysphagia [Recovered/Resolved]
